FAERS Safety Report 5811570-0 (Version None)
Quarter: 2008Q3

REPORT INFORMATION
  Report Type: 
  Country: None (occurrence: None)
  Receive Date: 20080716
  Receipt Date: 20080714
  Transmission Date: 20090109
  Serious: Yes (Life-Threatening)
  Sender: FDA-Public Use
  Company Number: NO-ASTRAZENECA-2008SE03455

PATIENT
  Age: 23471 Day
  Sex: Female

DRUGS (1)
  1. MARCAINE [Suspect]
     Indication: POSTOPERATIVE ANALGESIA
     Dosage: 25MG EACH OF 2 CATHETERS, EVERY 3 HOURS
     Route: 051
     Dates: start: 20080610, end: 20080610

REACTIONS (4)
  - BRADYCARDIA [None]
  - DYSGEUSIA [None]
  - HYPOTENSION [None]
  - RESPIRATORY ARREST [None]
